FAERS Safety Report 10304009 (Version 2)
Quarter: 2014Q3

REPORT INFORMATION
  Report Type: Report from Study
  Country: DE (occurrence: DE)
  Receive Date: 20140714
  Receipt Date: 20140714
  Transmission Date: 20150326
  Serious: Yes (Hospitalization)
  Sender: FDA-Public Use
  Company Number: DE-B.I. PHARMACEUTICALS,INC./RIDGEFIELD-2013-BI-28932BI

PATIENT
  Age: 72 Year
  Sex: Male
  Weight: 72 kg

DRUGS (16)
  1. VOLASERTIB [Suspect]
     Active Substance: VOLASERTIB
     Dosage: 350 MG
     Route: 042
     Dates: start: 20131024, end: 20131024
  2. CLEXANE [Concomitant]
     Active Substance: ENOXAPARIN SODIUM
     Indication: THROMBOSIS PROPHYLAXIS
     Dosage: 0.4 ML
     Route: 058
     Dates: start: 20130812, end: 20130820
  3. CYTARABINE. [Suspect]
     Active Substance: CYTARABINE
     Dosage: 40 MG
     Route: 058
     Dates: start: 20131010, end: 20131014
  4. FOLSON [Concomitant]
     Indication: FOLATE DEFICIENCY
     Dosage: 5 MG
     Route: 048
     Dates: start: 20130814
  5. PANTOZOL [Concomitant]
     Active Substance: PANTOPRAZOLE SODIUM
     Indication: PROPHYLAXIS
     Dosage: 20 MG
     Route: 048
     Dates: start: 20130817
  6. CYTARABINE. [Suspect]
     Active Substance: CYTARABINE
     Indication: ACUTE MYELOID LEUKAEMIA
     Dosage: 40 MG
     Route: 058
     Dates: start: 20130815
  7. METOPROLOL [Concomitant]
     Active Substance: METOPROLOL
     Dosage: 95 MG
     Route: 048
     Dates: end: 20131026
  8. MCP [Concomitant]
     Active Substance: METOCLOPRAMIDE HYDROCHLORIDE
     Indication: PROPHYLAXIS
     Dosage: DAILY DOSE: 60DROPS
     Route: 048
     Dates: start: 20130912
  9. NOVODIGAL [Concomitant]
     Active Substance: .BETA.-ACETYLDIGOXIN
     Indication: ATRIAL FIBRILLATION
     Dosage: 0.2 MG
     Route: 048
  10. ALLOPURINOL. [Concomitant]
     Active Substance: ALLOPURINOL
     Indication: PROPHYLAXIS
     Dosage: 300 MG
     Route: 048
     Dates: start: 20130814, end: 20130829
  11. VOLASERTIB [Suspect]
     Active Substance: VOLASERTIB
     Indication: ACUTE MYELOID LEUKAEMIA
     Dosage: 350 MG
     Route: 042
     Dates: start: 20130815
  12. NOVALGIN [Concomitant]
     Active Substance: METAMIZOLE SODIUM
     Indication: RELAPSING FEVER
     Dosage: 500 MG
     Route: 048
  13. NOVALGIN [Concomitant]
     Active Substance: METAMIZOLE SODIUM
     Indication: PAIN
     Dosage: 500 MG
     Route: 048
     Dates: start: 20131009
  14. PANTOZOL [Concomitant]
     Active Substance: PANTOPRAZOLE SODIUM
     Indication: PROPHYLAXIS
     Dosage: 20 MG
     Route: 048
     Dates: start: 20130911
  15. MCP [Concomitant]
     Active Substance: METOCLOPRAMIDE HYDROCHLORIDE
     Indication: NAUSEA
     Dosage: 15 MG
     Route: 048
     Dates: start: 20131024
  16. METOPROLOL [Concomitant]
     Active Substance: METOPROLOL
     Indication: ATRIAL FIBRILLATION
     Dosage: 100 MG
     Route: 048

REACTIONS (4)
  - Diarrhoea [Recovered/Resolved]
  - Febrile neutropenia [Recovered/Resolved]
  - Sepsis [Recovered/Resolved]
  - Pyrexia [Recovered/Resolved]

NARRATIVE: CASE EVENT DATE: 20130818
